FAERS Safety Report 20606061 (Version 1)
Quarter: 2022Q1

REPORT INFORMATION
  Report Type: Spontaneous
  Country: US (occurrence: US)
  Receive Date: 20220317
  Receipt Date: 20220317
  Transmission Date: 20220423
  Serious: Yes (Other)
  Sender: FDA-Public Use
  Company Number: US-STRIDES ARCOLAB LIMITED-2022SP001622

PATIENT
  Age: 4 Year
  Sex: Male
  Weight: 15 kg

DRUGS (2)
  1. TRIAMCINOLONE ACETONIDE [Suspect]
     Active Substance: TRIAMCINOLONE ACETONIDE
     Indication: Dermatitis psoriasiform
     Dosage: UNK, BID (OINTMENT TWICE A DAY)
     Route: 061
  2. RUPATADINE [Concomitant]
     Active Substance: RUPATADINE
     Indication: Seasonal allergy
     Dosage: UNK
     Route: 065

REACTIONS (1)
  - Drug ineffective [Unknown]
